FAERS Safety Report 5415020-8 (Version None)
Quarter: 2007Q3

REPORT INFORMATION
  Report Type: 
  Country: None (occurrence: None)
  Receive Date: 20070813
  Receipt Date: 20070726
  Transmission Date: 20080115
  Serious: Yes (Hospitalization, Other)
  Sender: FDA-Public Use
  Company Number: 2007JP003602

PATIENT
  Age: 39 Year
  Sex: Male

DRUGS (7)
  1. PROGRAF [Suspect]
     Indication: RENAL TRANSPLANT
     Dosage: 4 MG, IV NOS
     Route: 042
  2. PROGRAF [Suspect]
     Indication: RENAL TRANSPLANT
     Dosage: 8 MG, ORAL, 4 MG, ORAL
     Route: 048
  3. PREDNISONE TAB [Concomitant]
  4. MIZORIBINE (MIZORIBINE) [Concomitant]
  5. AZATHIOPRINE [Concomitant]
  6. METHYLPREDNISOLONE [Concomitant]
  7. DEOXYSPERGUALIN [Concomitant]

REACTIONS (6)
  - HAEMODIALYSIS [None]
  - HEPATIC CIRRHOSIS [None]
  - HEPATIC FAILURE [None]
  - KIDNEY TRANSPLANT REJECTION [None]
  - POLYOMAVIRUS-ASSOCIATED NEPHROPATHY [None]
  - SPLENOMEGALY [None]
